FAERS Safety Report 8470203-8 (Version None)
Quarter: 2012Q2

REPORT INFORMATION
  Report Type: 
  Country: None (occurrence: None)
  Receive Date: 20120621
  Receipt Date: 20120621
  Transmission Date: 20120825
  Serious: Yes (Other)
  Sender: FDA-Public Use
  Company Number: None

PATIENT
  Age: 29 Year
  Sex: Female
  Weight: 73.8 kg

DRUGS (5)
  1. VALACYCLOVIR HYDROCHLORIDE [Concomitant]
  2. BENDAMUSTINE HYDROCHLORIDE [Suspect]
     Indication: HODGKIN'S DISEASE
     Dosage: 108MG/INTRAVENOUS (042)
     Route: 042
     Dates: start: 20120504
  3. BENDAMUSTINE HYDROCHLORIDE [Suspect]
     Indication: HODGKIN'S DISEASE
     Dosage: 108MG/INTRAVENOUS (042)
     Route: 042
     Dates: start: 20120505
  4. GEMCITABINE [Suspect]
     Indication: HODGKIN'S DISEASE
     Dosage: 1786MG/INTRAVENOUS (042)
     Route: 042
     Dates: start: 20120504
  5. PROCHLORPERAZINE [Concomitant]

REACTIONS (5)
  - DIARRHOEA [None]
  - PALPITATIONS [None]
  - TACHYCARDIA [None]
  - DYSPNOEA [None]
  - CHEST DISCOMFORT [None]
